FAERS Safety Report 5321488-8 (Version None)
Quarter: 2007Q2

REPORT INFORMATION
  Report Type: 
  Country: None (occurrence: None)
  Receive Date: 20070510
  Receipt Date: 20070502
  Transmission Date: 20071010
  Serious: Yes (Disabling, Other)
  Sender: FDA-Public Use
  Company Number: DE-ASTRAZENECA-2007PK00394

PATIENT
  Age: 19471 Day
  Sex: Female
  Weight: 57 kg

DRUGS (3)
  1. BUPIVACAINE [Suspect]
     Indication: ANAESTHESIA
     Route: 053
  2. XYLONEST 1% [Suspect]
     Indication: ANAESTHESIA
     Route: 053
  3. CLONIDINE [Suspect]

REACTIONS (1)
  - HORNER'S SYNDROME [None]
